FAERS Safety Report 26023796 (Version 1)
Quarter: 2025Q4

REPORT INFORMATION
  Report Type: Report from Study
  Country: US (occurrence: US)
  Receive Date: 20251111
  Receipt Date: 20251111
  Transmission Date: 20260117
  Serious: Yes (Death)
  Sender: BAUSCH AND LOMB
  Company Number: US-BAUSCHBL-2025BNL031509

PATIENT
  Age: 87 Year
  Sex: Female

DRUGS (1)
  1. MIEBO [Suspect]
     Active Substance: PERFLUOROHEXYLOCTANE
     Indication: Product used for unknown indication
     Dosage: INSTILL 1 DROP INTO EACH EYE 4 TIMES DAILY FOR DRY EYE(S) (MUST SEE PACKAGE INSERT FOR ADMIN INSTRUC
     Route: 047
     Dates: end: 20251025

REACTIONS (1)
  - Death [Fatal]

NARRATIVE: CASE EVENT DATE: 20251031
